FAERS Safety Report 17597925 (Version 1)
Quarter: 2020Q1

REPORT INFORMATION
  Report Type: Spontaneous
  Country: US (occurrence: US)
  Receive Date: 20200330
  Receipt Date: 20200330
  Transmission Date: 20200409
  Serious: Yes (Other)
  Sender: FDA-Public Use
  Company Number: US-GLAXOSMITHKLINE-US2020054128

PATIENT
  Sex: Female

DRUGS (1)
  1. COREG CR [Suspect]
     Active Substance: CARVEDILOL PHOSPHATE
     Indication: HYPERTENSION
     Dosage: 40 MG, QD
     Route: 048
     Dates: start: 2017

REACTIONS (9)
  - Blood cholesterol increased [Unknown]
  - Rash [Unknown]
  - Urinary retention [Unknown]
  - Anxiety [Unknown]
  - Insomnia [Unknown]
  - Diarrhoea [Unknown]
  - Breast pain [Unknown]
  - Heart rate increased [Unknown]
  - Pruritus [Unknown]
